FAERS Safety Report 5881540-5 (Version None)
Quarter: 2008Q3

REPORT INFORMATION
  Report Type: 
  Country: None (occurrence: None)
  Receive Date: 20080911
  Receipt Date: 20080828
  Transmission Date: 20090109
  Serious: Yes (Hospitalization)
  Sender: FDA-Public Use
  Company Number: DSU-2008-01355

PATIENT
  Age: 70 Year
  Sex: Female

DRUGS (1)
  1. BENICAR [Suspect]
     Indication: DRUG USE FOR UNKNOWN INDICATION
     Dosage: 40 MG (40 MG, QD), PER ORAL
     Route: 048

REACTIONS (3)
  - DEHYDRATION [None]
  - SNEEZING [None]
  - VOMITING [None]
